FAERS Safety Report 11777358 (Version 1)
Quarter: 2015Q4

REPORT INFORMATION
  Report Type: Spontaneous
  Country: US (occurrence: US)
  Receive Date: 20151125
  Receipt Date: 20151125
  Transmission Date: 20160304
  Serious: No
  Sender: FDA-Public Use
  Company Number: US-MALLINCKRODT-T201503440

PATIENT
  Sex: Female

DRUGS (1)
  1. GABLOFEN [Suspect]
     Active Substance: BACLOFEN
     Indication: PRODUCT USED FOR UNKNOWN INDICATION
     Dosage: UNK
     Route: 065

REACTIONS (9)
  - Fall [Unknown]
  - Depressed mood [Unknown]
  - Feeling abnormal [Unknown]
  - Gait disturbance [Unknown]
  - Visual acuity reduced [Unknown]
  - Arthralgia [Unknown]
  - Muscle spasms [Unknown]
  - Joint swelling [Unknown]
  - Tremor [Unknown]
